FAERS Safety Report 16306506 (Version 3)
Quarter: 2022Q2

REPORT INFORMATION
  Report Type: Spontaneous
  Country: US (occurrence: None)
  Receive Date: 20190513
  Receipt Date: 20220408
  Transmission Date: 20220720
  Serious: Yes (Hospitalization, Other)
  Sender: FDA-Public Use
  Company Number: 2019SE67281

PATIENT
  Age: 21638 Day
  Sex: Male

DRUGS (58)
  1. NEXIUM [Suspect]
     Active Substance: ESOMEPRAZOLE MAGNESIUM
     Indication: Gastrooesophageal reflux disease
     Route: 048
     Dates: start: 200504, end: 201808
  2. NEXIUM [Suspect]
     Active Substance: ESOMEPRAZOLE MAGNESIUM
     Indication: Gastrooesophageal reflux disease
     Route: 048
     Dates: start: 20101013, end: 20150112
  3. NEXIUM [Suspect]
     Active Substance: ESOMEPRAZOLE MAGNESIUM
     Indication: Gastrooesophageal reflux disease
     Dosage: GENERIC
     Route: 065
     Dates: start: 20150303, end: 20190610
  4. NEXIUM [Suspect]
     Active Substance: ESOMEPRAZOLE MAGNESIUM
     Indication: Gastrooesophageal reflux disease
     Dosage: GENERIC
     Route: 065
     Dates: start: 20140217
  5. NEXIUM [Suspect]
     Active Substance: ESOMEPRAZOLE MAGNESIUM
     Indication: Gastrooesophageal reflux disease
     Dosage: GENERIC
     Route: 048
     Dates: start: 20140521
  6. LASIX [Suspect]
     Active Substance: FUROSEMIDE
     Route: 065
  7. LASIX [Suspect]
     Active Substance: FUROSEMIDE
     Route: 065
     Dates: start: 20140217
  8. CYMBALTA [Concomitant]
     Active Substance: DULOXETINE HYDROCHLORIDE
     Indication: Cardiovascular disorder
     Dates: start: 20080107, end: 20080407
  9. CYMBALTA [Concomitant]
     Active Substance: DULOXETINE HYDROCHLORIDE
     Indication: Gastrooesophageal reflux disease
     Dates: start: 20080107, end: 20080407
  10. CYMBALTA [Concomitant]
     Active Substance: DULOXETINE HYDROCHLORIDE
     Indication: Cardiovascular disorder
     Dates: start: 20120410, end: 20130910
  11. CYMBALTA [Concomitant]
     Active Substance: DULOXETINE HYDROCHLORIDE
     Indication: Gastrooesophageal reflux disease
     Dates: start: 20120410, end: 20130910
  12. METOPROLOL SUCCINATE [Concomitant]
     Active Substance: METOPROLOL SUCCINATE
     Indication: Cardiovascular disorder
     Dates: start: 20080107, end: 20080313
  13. METOPROLOL SUCCINATE [Concomitant]
     Active Substance: METOPROLOL SUCCINATE
     Indication: Gastrooesophageal reflux disease
     Dates: start: 20080107, end: 20080313
  14. CLONIDINE [Concomitant]
     Active Substance: CLONIDINE
     Indication: Depression
     Dates: start: 20080115, end: 20080501
  15. CLONIDINE [Concomitant]
     Active Substance: CLONIDINE
     Indication: Depression
     Dates: start: 20160929, end: 20180924
  16. CLONIDINE [Concomitant]
     Active Substance: CLONIDINE
     Indication: Depression
     Dates: start: 20190528, end: 20190828
  17. LEVOTHYROXINE SODIUM [Concomitant]
     Active Substance: LEVOTHYROXINE SODIUM
     Indication: Blood pressure abnormal
     Dates: start: 20130118, end: 20130820
  18. BENICAR [Concomitant]
     Active Substance: OLMESARTAN MEDOXOMIL
     Indication: Pain
     Dates: start: 20080115, end: 20080410
  19. EFFEXOR [Concomitant]
     Active Substance: VENLAFAXINE HYDROCHLORIDE
     Indication: Anxiety
     Dates: start: 20080129, end: 20080501
  20. AMBIEN [Concomitant]
     Active Substance: ZOLPIDEM TARTRATE
     Indication: Blood pressure abnormal
     Dates: start: 20080129, end: 20091106
  21. TRICOR [Concomitant]
     Active Substance: FENOFIBRATE
     Indication: Depression
     Dates: start: 20080129, end: 20080501
  22. TRICOR [Concomitant]
     Active Substance: FENOFIBRATE
     Indication: Depression
     Dates: start: 20090206, end: 20110315
  23. TRICOR [Concomitant]
     Active Substance: FENOFIBRATE
     Indication: Depression
     Dates: start: 20120717, end: 20121104
  24. CARDIZEM [Concomitant]
     Active Substance: DILTIAZEM HYDROCHLORIDE
     Indication: Insomnia
     Dates: start: 20080129, end: 20080325
  25. CARDIZEM [Concomitant]
     Active Substance: DILTIAZEM HYDROCHLORIDE
     Indication: Insomnia
     Dates: start: 20080129, end: 20080325
  26. HYDROCODONE-ACETAMENOPHEN [Concomitant]
     Indication: Cardiovascular disorder
     Dates: start: 20080115, end: 20150311
  27. HYDROCODONE-ACETAMENOPHEN [Concomitant]
     Indication: Blood pressure abnormal
     Dates: start: 20080115, end: 20150311
  28. HYDROCODONE-ACETAMENOPHEN [Concomitant]
     Indication: Cardiovascular disorder
     Dates: start: 20151023, end: 20190613
  29. HYDROCODONE-ACETAMENOPHEN [Concomitant]
     Indication: Blood pressure abnormal
     Dates: start: 20151023, end: 20190613
  30. LORAZEPAM [Concomitant]
     Active Substance: LORAZEPAM
     Indication: Thyroid disorder
     Dates: start: 20080115, end: 20090104
  31. LORAZEPAM [Concomitant]
     Active Substance: LORAZEPAM
     Indication: Thyroid disorder
     Dates: start: 20081003, end: 20081103
  32. LORAZEPAM [Concomitant]
     Active Substance: LORAZEPAM
     Indication: Thyroid disorder
     Dates: start: 20160415, end: 20190618
  33. TUMS [Concomitant]
     Active Substance: CALCIUM CARBONATE
     Dosage: 9 PER DAY
     Dates: start: 202002
  34. PLAVIX [Concomitant]
     Active Substance: CLOPIDOGREL BISULFATE
  35. ACTOS [Concomitant]
     Active Substance: PIOGLITAZONE HYDROCHLORIDE
  36. VYTORIN [Concomitant]
     Active Substance: EZETIMIBE\SIMVASTATIN
  37. LABETALOL HYDROCHLORIDE [Concomitant]
     Active Substance: LABETALOL HYDROCHLORIDE
  38. MINOXIDIL [Concomitant]
     Active Substance: MINOXIDIL
  39. FLOMAX [Concomitant]
     Active Substance: TAMSULOSIN HYDROCHLORIDE
  40. COREG [Concomitant]
     Active Substance: CARVEDILOL
  41. TESTIM [Concomitant]
     Active Substance: TESTOSTERONE
  42. FLUCONAZOLE [Concomitant]
     Active Substance: FLUCONAZOLE
  43. LANTUS [Concomitant]
     Active Substance: INSULIN GLARGINE
  44. DIAZEPAM [Concomitant]
     Active Substance: DIAZEPAM
  45. SIMVASTATIN [Concomitant]
     Active Substance: SIMVASTATIN
  46. CIALIS [Concomitant]
     Active Substance: TADALAFIL
  47. AVODART [Concomitant]
     Active Substance: DUTASTERIDE
  48. HUMALOG [Concomitant]
     Active Substance: INSULIN LISPRO
  49. LYRICA [Concomitant]
     Active Substance: PREGABALIN
  50. LEVAQUIN [Concomitant]
     Active Substance: LEVOFLOXACIN
  51. AMOXICILLIN [Concomitant]
     Active Substance: AMOXICILLIN
  52. COMBIVENT [Concomitant]
     Active Substance: ALBUTEROL SULFATE\IPRATROPIUM BROMIDE
  53. CRESTOR [Concomitant]
     Active Substance: ROSUVASTATIN CALCIUM
  54. CIPRODEX [Concomitant]
     Active Substance: CIPROFLOXACIN HYDROCHLORIDE\DEXAMETHASONE
  55. FINASTERIDE [Concomitant]
     Active Substance: FINASTERIDE
  56. ZETIA [Concomitant]
     Active Substance: EZETIMIBE
  57. ISOSORBIDE MONONITRATE [Concomitant]
     Active Substance: ISOSORBIDE MONONITRATE
  58. CHROMIUM PICOLINATE [Concomitant]
     Active Substance: CHROMIUM PICOLINATE
     Dates: start: 20140217

REACTIONS (3)
  - Acute kidney injury [Unknown]
  - Chronic kidney disease [Not Recovered/Not Resolved]
  - Renal failure [Unknown]

NARRATIVE: CASE EVENT DATE: 20160728
